FAERS Safety Report 7542862-5 (Version None)
Quarter: 2011Q2

REPORT INFORMATION
  Report Type: 
  Country: None (occurrence: None)
  Receive Date: 20110613
  Receipt Date: 20110601
  Transmission Date: 20111010
  Serious: Yes (Hospitalization)
  Sender: FDA-Public Use
  Company Number: DE-PFIZER INC-2011091405

PATIENT
  Age: 63 Year
  Sex: Male

DRUGS (9)
  1. TORISEL [Suspect]
     Indication: HEAD AND NECK CANCER
     Dosage: 25 MG, WEEKLY
     Route: 041
     Dates: start: 20100922, end: 20110315
  2. LYRICA [Concomitant]
     Dosage: UNK
     Dates: start: 20110228
  3. DEXAMETHASONE [Suspect]
     Dosage: UNK
     Dates: start: 20100922
  4. FENISTIL [Concomitant]
     Dosage: UNK
     Dates: start: 20100922
  5. METOCLOPRAMIDE [Concomitant]
     Dosage: UNK
     Dates: start: 20101013
  6. IBUPROFEN [Concomitant]
     Dosage: UNK
     Dates: start: 20100823
  7. DURAGESIC-100 [Concomitant]
     Dosage: UNK
     Dates: start: 20110228
  8. HEPARIN [Concomitant]
     Dosage: UNK
     Dates: start: 20100920
  9. SIMVASTATIN [Concomitant]
     Dosage: UNK
     Dates: start: 20101012

REACTIONS (4)
  - GENERAL PHYSICAL HEALTH DETERIORATION [None]
  - COUGH [None]
  - PNEUMONIA [None]
  - DYSPNOEA [None]
